FAERS Safety Report 6114334-6 (Version None)
Quarter: 2009Q1

REPORT INFORMATION
  Report Type: 
  Country: None (occurrence: None)
  Receive Date: 20090312
  Receipt Date: 20090211
  Transmission Date: 20090719
  Serious: No
  Sender: FDA-Public Use
  Company Number: US-ABBOTT-09P-163-0503273-00

PATIENT
  Sex: Male
  Weight: 88.53 kg

DRUGS (6)
  1. DEPAKOTE [Suspect]
     Indication: BIPOLAR DISORDER
     Route: 048
     Dates: start: 20070101
  2. DEPAKOTE [Suspect]
     Route: 048
     Dates: end: 20081101
  3. KLONOPIN [Concomitant]
     Indication: DRUG USE FOR UNKNOWN INDICATION
  4. OXYCONTIN [Concomitant]
     Indication: DRUG USE FOR UNKNOWN INDICATION
  5. LORTAB [Concomitant]
     Indication: DRUG USE FOR UNKNOWN INDICATION
  6. LUNESTA [Concomitant]
     Indication: INSOMNIA

REACTIONS (3)
  - ALOPECIA [None]
  - CONTUSION [None]
  - DYSPNOEA [None]
